FAERS Safety Report 9479157 (Version 1)
Quarter: 2013Q3

REPORT INFORMATION
  Report Type: Spontaneous
  Country: US (occurrence: US)
  Receive Date: 20130827
  Receipt Date: 20130827
  Transmission Date: 20140515
  Serious: Yes (Other)
  Sender: FDA-Public Use
  Company Number: US-ELI_LILLY_AND_COMPANY-US201308005701

PATIENT
  Sex: Male

DRUGS (3)
  1. INSULIN HUMAN [Suspect]
     Indication: DIABETES MELLITUS
  2. HUMALOG LISPRO [Suspect]
     Indication: DIABETES MELLITUS
     Dosage: 20 U, QD
  3. HUMULIN NPH [Suspect]
     Indication: DIABETES MELLITUS

REACTIONS (4)
  - Diabetic complication [Not Recovered/Not Resolved]
  - Blood glucose increased [Unknown]
  - Intentional drug misuse [Unknown]
  - Drug dispensing error [Unknown]
